FAERS Safety Report 8244993-3 (Version None)
Quarter: 2012Q1

REPORT INFORMATION
  Report Type: 
  Country: None (occurrence: None)
  Receive Date: 20120329
  Receipt Date: 20120320
  Transmission Date: 20120608
  Serious: Yes (Other)
  Sender: FDA-Public Use
  Company Number: US-ABBOTT-12P-163-0917793-00

PATIENT
  Age: 20 Month
  Sex: Female

DRUGS (2)
  1. LUPRON [Suspect]
     Indication: PRECOCIOUS PUBERTY
     Dates: start: 20110101, end: 20120301
  2. 6 VACCINATIONS [Suspect]
     Indication: IMMUNISATION
     Dosage: 6 VACCINATIONS TOTAL.   3 IN EACH THIGH
     Dates: start: 20120314, end: 20120314

REACTIONS (6)
  - MYOSITIS [None]
  - WEIGHT BEARING DIFFICULTY [None]
  - ABSCESS LIMB [None]
  - DERMAL CYST [None]
  - PYREXIA [None]
  - GAIT DISTURBANCE [None]
